FAERS Safety Report 25287803 (Version 3)
Quarter: 2025Q3

REPORT INFORMATION
  Report Type: Spontaneous
  Country: US (occurrence: US)
  Receive Date: 20250509
  Receipt Date: 20250802
  Transmission Date: 20251020
  Serious: Yes (Death, Other)
  Sender: ALEXION PHARMACEUTICALS
  Company Number: US-AstraZeneca-CH-00863649A

PATIENT
  Age: 17 Year
  Sex: Male
  Weight: 89.2 kg

DRUGS (1)
  1. SOLIRIS [Suspect]
     Active Substance: ECULIZUMAB
     Indication: Thrombotic microangiopathy

REACTIONS (4)
  - Multiple organ dysfunction syndrome [Fatal]
  - Microangiopathy [Fatal]
  - Venoocclusive liver disease [Fatal]
  - Ewing^s sarcoma [Fatal]
